APPROVED DRUG PRODUCT: XEPI
Active Ingredient: OZENOXACIN
Strength: 1%
Dosage Form/Route: CREAM;TOPICAL
Application: N208945 | Product #001
Applicant: LNHC INC
Approved: Dec 11, 2017 | RLD: Yes | RS: No | Type: DISCN

PATENTS:
Patent 9399014 | Expires: Dec 15, 2029
Patent 9180200 | Expires: Jan 29, 2032